FAERS Safety Report 4788848-5 (Version None)
Quarter: 2005Q4

REPORT INFORMATION
  Report Type: 
  Country: None (occurrence: None)
  Receive Date: 20051005
  Receipt Date: 20050927
  Transmission Date: 20060501
  Serious: Yes (Death, Other)
  Sender: FDA-Public Use
  Company Number: DK-BRISTOL-MYERS SQUIBB COMPANY-13122841

PATIENT
  Age: 33 Year
  Sex: Male

DRUGS (2)
  1. HYDROXYUREA [Suspect]
     Indication: ACUTE MYELOID LEUKAEMIA
  2. MITOZANTRONE [Suspect]

REACTIONS (9)
  - CEREBRAL HAEMORRHAGE [None]
  - DISEASE PROGRESSION [None]
  - ERYTHEMA [None]
  - MOUTH ULCERATION [None]
  - OEDEMA PERIPHERAL [None]
  - PLATELET COUNT DECREASED [None]
  - SKIN HYPERPIGMENTATION [None]
  - SKIN TOXICITY [None]
  - STOMATITIS [None]
